FAERS Safety Report 7820524-4 (Version None)
Quarter: 2011Q4

REPORT INFORMATION
  Report Type: 
  Country: None (occurrence: None)
  Receive Date: 20111018
  Receipt Date: 20111011
  Transmission Date: 20120403
  Serious: Yes (Death, Hospitalization, Other)
  Sender: FDA-Public Use
  Company Number: PHHY2011JP86460

PATIENT
  Age: 30 Year
  Sex: Female

DRUGS (6)
  1. OXYGEN THERAPY [Concomitant]
     Dosage: UNK UKN, UNK
     Dates: start: 20060101
  2. MYCOPHENOLATE MOFETIL [Concomitant]
     Dosage: UNK UKN, UNK
     Dates: end: 20090101
  3. PREDNISOLONE [Concomitant]
     Dosage: 2.5 MG/MONTH
  4. METHYLPREDNISOLONE SODIUM SUCCINATE [Concomitant]
     Dosage: 250 MG/DAY
  5. PREDNISOLONE [Concomitant]
     Indication: BONE MARROW TRANSPLANT
     Dosage: 15 MG/DAY
     Dates: start: 20100901
  6. CYCLOSPORINE [Suspect]
     Indication: LUNG TRANSPLANT
     Dosage: UNK UKN, UNK
     Dates: start: 20101001

REACTIONS (31)
  - HAEMATOCHEZIA [None]
  - PULMONARY HAEMORRHAGE [None]
  - MYDRIASIS [None]
  - ATRIOVENTRICULAR BLOCK COMPLETE [None]
  - ANURIA [None]
  - ANAEMIA [None]
  - THROMBOCYTOPENIA [None]
  - PULMONARY CONGESTION [None]
  - CARDIO-RESPIRATORY ARREST [None]
  - ACUTE RESPIRATORY DISTRESS SYNDROME [None]
  - VENOOCCLUSIVE DISEASE [None]
  - RESPIRATORY TRACT INFLAMMATION [None]
  - MYCOPLASMA TEST POSITIVE [None]
  - CHEST X-RAY ABNORMAL [None]
  - PNEUMONIA [None]
  - CYTOMEGALOVIRUS INFECTION [None]
  - INFLAMMATION [None]
  - PYREXIA [None]
  - OXYGEN SATURATION DECREASED [None]
  - INFLUENZA LIKE ILLNESS [None]
  - DYSPNOEA [None]
  - RESPIRATORY FAILURE [None]
  - THROMBOTIC MICROANGIOPATHY [None]
  - GRAFT VERSUS HOST DISEASE IN LUNG [None]
  - BLOOD LACTATE DEHYDROGENASE INCREASED [None]
  - NERVOUS SYSTEM DISORDER [None]
  - PNEUMONIA MYCOPLASMAL [None]
  - LUNG INFILTRATION [None]
  - RALES [None]
  - COAGULATION TEST ABNORMAL [None]
  - PANCREATIC NECROSIS [None]
